FAERS Safety Report 9124302 (Version 5)
Quarter: 2013Q3

REPORT INFORMATION
  Report Type: Spontaneous
  Country: GB (occurrence: GB)
  Receive Date: 20130227
  Receipt Date: 20130729
  Transmission Date: 20140515
  Serious: Yes (Life-Threatening, Hospitalization, Disabling, Other)
  Sender: FDA-Public Use
  Company Number: GB-JNJFOC-20130211982

PATIENT
  Age: 43 Year
  Sex: Female
  Weight: 85 kg

DRUGS (4)
  1. STELARA [Suspect]
     Indication: PSORIASIS
     Route: 058
     Dates: start: 201111, end: 20130225
  2. SIMVASTATIN [Concomitant]
     Route: 065
     Dates: end: 20130218
  3. CLOPIDOGREL [Concomitant]
     Route: 065
     Dates: end: 20130219
  4. BENDROFLUMETHIAZIDE [Concomitant]
     Route: 065
     Dates: end: 20130219

REACTIONS (8)
  - Left ventricular hypertrophy [Unknown]
  - Aphasia [Recovering/Resolving]
  - Syncope [Recovering/Resolving]
  - Cerebral infarction [Recovering/Resolving]
  - Antiphospholipid antibodies positive [Unknown]
  - Mitral valve incompetence [Unknown]
  - Posture abnormal [Recovering/Resolving]
  - Cerebrovascular accident [Recovering/Resolving]
